FAERS Safety Report 6299318-X (Version None)
Quarter: 2009Q3

REPORT INFORMATION
  Report Type: 
  Country: None (occurrence: None)
  Receive Date: 20090806
  Receipt Date: 20090730
  Transmission Date: 20100115
  Serious: Yes (Hospitalization, Disabling, Other)
  Sender: FDA-Public Use
  Company Number: JP-ASTRAZENECA-2009SE06495

PATIENT
  Age: 65 Year
  Sex: Male

DRUGS (6)
  1. CRESTOR [Suspect]
     Indication: ACUTE MYOCARDIAL INFARCTION
     Route: 048
     Dates: start: 20090715, end: 20090727
  2. PLAVIX [Concomitant]
     Indication: ACUTE MYOCARDIAL INFARCTION
     Dosage: DOSE UNKNOWN
     Route: 048
     Dates: start: 20090713, end: 20090727
  3. ASPIRIN [Concomitant]
     Indication: ACUTE MYOCARDIAL INFARCTION
     Dosage: DOSE UNKNOWN
     Route: 048
     Dates: start: 20090713, end: 20090727
  4. RENIVACE [Concomitant]
     Indication: ACUTE MYOCARDIAL INFARCTION
     Dosage: NUMBER FO SEPARATE DOSES UNKNOWN
     Route: 048
     Dates: start: 20090720
  5. RENIVACE [Concomitant]
     Dosage: NUMBER OF SEPARATE DOSES UNKNOWN
     Route: 048
  6. RENIVACE [Concomitant]
     Dosage: NUMBER OF SEPARATE DOSES UNKNOWN
     Route: 048
     Dates: end: 20090727

REACTIONS (3)
  - DRUG ERUPTION [None]
  - RENAL FAILURE ACUTE [None]
  - RHABDOMYOLYSIS [None]
